FAERS Safety Report 7122801-1 (Version None)
Quarter: 2010Q4

REPORT INFORMATION
  Report Type: 
  Country: None (occurrence: None)
  Receive Date: 20101124
  Receipt Date: 20101118
  Transmission Date: 20110411
  Serious: Yes (Hospitalization)
  Sender: FDA-Public Use
  Company Number: IE-ABBOTT-10P-229-0675844-00

PATIENT
  Sex: Female
  Weight: 85 kg

DRUGS (4)
  1. HUMIRA [Suspect]
     Indication: CROHN'S DISEASE
     Dosage: 80MG LOADING DOSE
     Route: 058
     Dates: start: 20100806, end: 20100901
  2. HUMIRA [Suspect]
  3. PARACETAMOL [Concomitant]
     Indication: PRODUCT USED FOR UNKNOWN INDICATION
  4. IBRUPROFEN [Concomitant]
     Indication: PRODUCT USED FOR UNKNOWN INDICATION

REACTIONS (6)
  - ALANINE AMINOTRANSFERASE INCREASED [None]
  - BLOOD ALKALINE PHOSPHATASE INCREASED [None]
  - GAMMA-GLUTAMYLTRANSFERASE INCREASED [None]
  - HEPATIC ENZYME INCREASED [None]
  - LIVER FUNCTION TEST ABNORMAL [None]
  - MUSCULOSKELETAL PAIN [None]
